FAERS Safety Report 5692757-7 (Version None)
Quarter: 2008Q2

REPORT INFORMATION
  Report Type: 
  Country: None (occurrence: None)
  Receive Date: 20080401
  Receipt Date: 20080318
  Transmission Date: 20081010
  Serious: Yes (Other)
  Sender: FDA-Public Use
  Company Number: 232331J08USA

PATIENT
  Age: 51 Year
  Sex: Female
  Weight: 76.2043 kg

DRUGS (6)
  1. REBIF [Suspect]
     Indication: MULTIPLE SCLEROSIS
     Dosage: 44 MCG, 3 IN 1 WEEKS, SUBCUTANEOUS
     Route: 058
     Dates: start: 20070411
  2. PREDNISONE [Suspect]
     Indication: MULTIPLE SCLEROSIS
     Dosage: 20 MG, 1 IN 1 DAYS, ORAL
     Route: 048
  3. DEPAKOTE [Concomitant]
  4. TOPAMAX [Concomitant]
  5. GABAPENTIN [Concomitant]
  6. CYCLOBENZAPRINE [Concomitant]

REACTIONS (1)
  - DIABETES MELLITUS [None]
